FAERS Safety Report 8289822-7 (Version None)
Quarter: 2012Q2

REPORT INFORMATION
  Report Type: 
  Country: None (occurrence: None)
  Receive Date: 20120417
  Receipt Date: 20120412
  Transmission Date: 20120825
  Serious: No
  Sender: FDA-Public Use
  Company Number: US-PFIZER INC-2012092097

PATIENT
  Sex: Female
  Weight: 62.132 kg

DRUGS (3)
  1. BACITRACIN [Interacting]
     Indication: LIMB INJURY
     Dosage: UNK
     Dates: start: 20120329
  2. ACETYLSALICYLIC ACID [Concomitant]
     Dosage: UNK
  3. TIKOSYN [Suspect]
     Indication: ATRIAL FIBRILLATION
     Dosage: 500 UG, 2X/DAY
     Route: 048
     Dates: start: 20120215

REACTIONS (7)
  - SCRATCH [None]
  - SKIN BURNING SENSATION [None]
  - HYPERSENSITIVITY [None]
  - INFECTION [None]
  - LIMB INJURY [None]
  - OEDEMA PERIPHERAL [None]
  - DRUG INTERACTION [None]
